FAERS Safety Report 9322654 (Version 4)
Quarter: 2014Q2

REPORT INFORMATION
  Report Type: Report from Study
  Country: US (occurrence: US)
  Receive Date: 20130531
  Receipt Date: 20140529
  Transmission Date: 20141212
  Serious: Yes (Hospitalization)
  Sender: FDA-Public Use
  Company Number: US-US-EMD SERONO, INC.-7214112

PATIENT
  Age: 57 Year
  Sex: Female
  Weight: 80 kg

DRUGS (2)
  1. REBIF [Suspect]
     Indication: MULTIPLE SCLEROSIS
     Route: 058
     Dates: start: 20070525
  2. CELEBREX [Concomitant]
     Indication: MUSCULOSKELETAL STIFFNESS

REACTIONS (3)
  - Uterine cancer [Recovered/Resolved]
  - Pulmonary embolism [Recovered/Resolved]
  - Incision site complication [Recovered/Resolved]
